FAERS Safety Report 12115626 (Version 1)
Quarter: 2016Q1

REPORT INFORMATION
  Report Type: Spontaneous
  Country: GB (occurrence: GB)
  Receive Date: 20160225
  Receipt Date: 20160225
  Transmission Date: 20160526
  Serious: Yes (Disabling, Other)
  Sender: FDA-Public Use
  Company Number: GB-GLAXOSMITHKLINE-GB2016023717

PATIENT
  Age: 39 Year
  Sex: Female
  Weight: 64 kg

DRUGS (1)
  1. DUAC [Suspect]
     Active Substance: BENZOYL PEROXIDE\CLINDAMYCIN PHOSPHATE
     Indication: ACNE
     Dosage: ONCE A DAY
     Route: 061
     Dates: start: 20151130, end: 20151206

REACTIONS (5)
  - Ocular hyperaemia [Recovering/Resolving]
  - Accidental exposure to product [Recovering/Resolving]
  - Visual acuity reduced [Recovering/Resolving]
  - Eye burns [Recovering/Resolving]
  - Eye swelling [Recovering/Resolving]
